FAERS Safety Report 5445896-X (Version None)
Quarter: 2007Q3

REPORT INFORMATION
  Report Type: 
  Country: None (occurrence: None)
  Receive Date: 20070907
  Receipt Date: 20070904
  Transmission Date: 20080115
  Serious: Yes (Disabling, Other)
  Sender: FDA-Public Use
  Company Number: PHEH2007US07719

PATIENT
  Age: 76 Year
  Sex: Female

DRUGS (11)
  1. ZELNORM [Suspect]
     Indication: IRRITABLE BOWEL SYNDROME
     Dosage: 6 MG, BID
     Dates: start: 20020925
  2. WELCHOL [Concomitant]
     Dosage: 625 MG, UNK
     Dates: start: 20030101
  3. AMLODIPINE BESYLATE [Concomitant]
     Dosage: 5 MG, UNK
     Dates: start: 20030101
  4. ACCUPRIL [Concomitant]
     Dosage: 40 MG, UNK
     Dates: start: 20030101
  5. SYNTHROID [Concomitant]
     Dosage: 0.1 MG, UNK
     Dates: start: 20030101
  6. FOSAMAX [Concomitant]
     Dates: start: 20030101
  7. PREMARIN [Concomitant]
  8. CELEBREX [Concomitant]
     Dosage: 200 MG, UNK
  9. VITAMIN CAP [Concomitant]
  10. CALCIUM [Concomitant]
  11. VITAMIN E [Concomitant]

REACTIONS (2)
  - BLINDNESS [None]
  - CEREBROVASCULAR ACCIDENT [None]
